FAERS Safety Report 4863362-7 (Version None)
Quarter: 2005Q4

REPORT INFORMATION
  Report Type: 
  Country: None (occurrence: None)
  Receive Date: 20051222
  Receipt Date: 20040819
  Transmission Date: 20060501
  Serious: No
  Sender: FDA-Public Use
  Company Number: US-GLAXOSMITHKLINE-A0522815A

PATIENT
  Age: 65 Year
  Sex: Male

DRUGS (3)
  1. FLONASE [Suspect]
     Dosage: 1SPR TWICE PER DAY
     Route: 045
     Dates: start: 20030901
  2. VALIUM [Concomitant]
     Route: 065
  3. ALTACE [Concomitant]
     Route: 065

REACTIONS (7)
  - BLOOD TESTOSTERONE INCREASED [None]
  - EPISTAXIS [None]
  - NASAL CONGESTION [None]
  - POSTNASAL DRIP [None]
  - PROSTATIC SPECIFIC ANTIGEN INCREASED [None]
  - PROSTATITIS [None]
  - THERAPEUTIC RESPONSE UNEXPECTED [None]
